FAERS Safety Report 4595604-X (Version None)
Quarter: 2005Q1

REPORT INFORMATION
  Report Type: 
  Country: None (occurrence: None)
  Receive Date: 20050223
  Receipt Date: 20050223
  Transmission Date: 20050727
  Serious: Yes (Hospitalization)
  Sender: FDA-Public Use
  Company Number: None

PATIENT
  Age: 43 Year
  Sex: Male
  Weight: 132.7 kg

DRUGS (3)
  1. PROPOFOL [Suspect]
     Indication: INTUBATION
  2. PROPOFOL [Suspect]
     Indication: SEDATION
  3. METHYLPRED [Concomitant]

REACTIONS (9)
  - CARDIAC FAILURE [None]
  - FLUID OVERLOAD [None]
  - HYPERTENSIVE CRISIS [None]
  - HYPOTENSION [None]
  - MYOCARDIAL INFARCTION [None]
  - PNEUMONIA [None]
  - PULMONARY OEDEMA [None]
  - RENAL FAILURE ACUTE [None]
  - RHABDOMYOLYSIS [None]
